FAERS Safety Report 23169594 (Version 1)
Quarter: 2023Q4

REPORT INFORMATION
  Report Type: Spontaneous
  Country: US (occurrence: US)
  Receive Date: 20231110
  Receipt Date: 20231110
  Transmission Date: 20240110
  Serious: Yes (Other)
  Sender: FDA-Public Use
  Company Number: US-SANDOZ-SDZ2023US051744

PATIENT
  Sex: Male

DRUGS (22)
  1. AZITHROMYCIN [Suspect]
     Active Substance: AZITHROMYCIN
     Indication: Immunosuppression
     Route: 065
  2. AZITHROMYCIN [Suspect]
     Active Substance: AZITHROMYCIN
     Indication: Bacterial infection
  3. AZITHROMYCIN [Suspect]
     Active Substance: AZITHROMYCIN
     Indication: Mycobacterium abscessus infection
  4. AZITHROMYCIN [Suspect]
     Active Substance: AZITHROMYCIN
     Indication: Vascular device infection
  5. AMIKACIN [Suspect]
     Active Substance: AMIKACIN
     Indication: Immunosuppression
     Route: 065
  6. AMIKACIN [Suspect]
     Active Substance: AMIKACIN
     Indication: Immunosuppression
     Route: 065
  7. AMIKACIN [Suspect]
     Active Substance: AMIKACIN
     Indication: Bacterial infection
  8. AMIKACIN [Suspect]
     Active Substance: AMIKACIN
     Indication: Mycobacterium abscessus infection
  9. AMIKACIN [Suspect]
     Active Substance: AMIKACIN
     Indication: Vascular device infection
  10. CEFDINIR [Suspect]
     Active Substance: CEFDINIR
     Indication: Mycobacterium abscessus infection
     Route: 065
  11. CEFDINIR [Suspect]
     Active Substance: CEFDINIR
     Indication: Bacterial infection
  12. CEFDINIR [Suspect]
     Active Substance: CEFDINIR
     Indication: Immunosuppression
  13. CEFDINIR [Suspect]
     Active Substance: CEFDINIR
     Indication: Vascular device infection
  14. DOXYCYCLINE [Suspect]
     Active Substance: DOXYCYCLINE
     Indication: Mycobacterium abscessus infection
     Route: 065
  15. DOXYCYCLINE [Suspect]
     Active Substance: DOXYCYCLINE
     Indication: Bacterial infection
  16. DOXYCYCLINE [Suspect]
     Active Substance: DOXYCYCLINE
     Indication: Immunosuppression
  17. DOXYCYCLINE [Suspect]
     Active Substance: DOXYCYCLINE
     Indication: Vascular device infection
  18. IMIPENEM [Suspect]
     Active Substance: IMIPENEM
     Indication: Immunosuppression
     Route: 065
  19. IMIPENEM [Suspect]
     Active Substance: IMIPENEM
     Indication: Immunosuppression
     Route: 065
  20. IMIPENEM [Suspect]
     Active Substance: IMIPENEM
     Indication: Bacterial infection
  21. IMIPENEM [Suspect]
     Active Substance: IMIPENEM
     Indication: Mycobacterium abscessus infection
  22. IMIPENEM [Suspect]
     Active Substance: IMIPENEM
     Indication: Vascular device infection

REACTIONS (1)
  - Lower respiratory tract infection [Unknown]
